FAERS Safety Report 14568770 (Version 1)
Quarter: 2018Q1

REPORT INFORMATION
  Report Type: Spontaneous
  Country: GB (occurrence: GB)
  Receive Date: 20180223
  Receipt Date: 20180223
  Transmission Date: 20180509
  Serious: Yes (Life-Threatening, Hospitalization)
  Sender: FDA-Public Use
  Company Number: GB-PERRIGO-18GB001994

PATIENT
  Age: 42 Year
  Sex: Male
  Weight: 70 kg

DRUGS (2)
  1. IBUPROFEN. [Suspect]
     Active Substance: IBUPROFEN
     Indication: LIGAMENT RUPTURE
     Dosage: UNKNOWN, TID
     Route: 061
     Dates: start: 20160711, end: 20180115
  2. IBUPROFEN. [Suspect]
     Active Substance: IBUPROFEN
     Indication: PAIN IN EXTREMITY
     Dosage: 200 MG, 3-4 TIMES DAILY
     Route: 048
     Dates: start: 20160711, end: 20180111

REACTIONS (2)
  - Gastric ulcer perforation [Recovered/Resolved with Sequelae]
  - Abdominal pain [Unknown]

NARRATIVE: CASE EVENT DATE: 20180111
